FAERS Safety Report 6934857-7 (Version None)
Quarter: 2010Q3

REPORT INFORMATION
  Report Type: 
  Country: None (occurrence: None)
  Receive Date: 20100820
  Receipt Date: 20100806
  Transmission Date: 20110219
  Serious: Yes (Other)
  Sender: FDA-Public Use
  Company Number: PHHY2010TW51804

PATIENT
  Sex: Female

DRUGS (1)
  1. ZOLEDRONIC [Suspect]
     Indication: OSTEOPOROSIS POSTMENOPAUSAL
     Dosage: 5 MG ONCE PER YEAR
     Route: 042

REACTIONS (4)
  - BEDRIDDEN [None]
  - HAEMORRHOIDS [None]
  - PAIN [None]
  - PYREXIA [None]
